FAERS Safety Report 7623105-0 (Version None)
Quarter: 2011Q3

REPORT INFORMATION
  Report Type: 
  Country: None (occurrence: None)
  Receive Date: 20110720
  Receipt Date: 20110712
  Transmission Date: 20111222
  Serious: Yes (Life-Threatening, Hospitalization)
  Sender: FDA-Public Use
  Company Number: AU-JNJFOC-20110706092

PATIENT
  Sex: Male

DRUGS (33)
  1. OXYCONTIN [Concomitant]
     Indication: CANCER PAIN
     Route: 048
     Dates: start: 20070806
  2. CALCIUM COMPLETE [Concomitant]
     Indication: NUTRITIONAL SUPPORT
     Route: 048
     Dates: start: 19980101
  3. LEUPROLIDE ACETATE [Concomitant]
     Route: 058
     Dates: start: 20070305
  4. SODIUM CHLORIDE [Concomitant]
     Indication: RENAL IMPAIRMENT
     Route: 042
     Dates: start: 20101103
  5. PANTOPRAZOLE SODIUM [Concomitant]
     Indication: GASTROOESOPHAGEAL REFLUX DISEASE
     Route: 048
     Dates: start: 20101112
  6. COLOXYL SENNA [Concomitant]
     Indication: CONSTIPATION
     Route: 048
     Dates: start: 20100907
  7. ABIRATERONE ACETATE [Suspect]
     Route: 048
     Dates: start: 20080821, end: 20101014
  8. ABIRATERONE ACETATE [Suspect]
     Route: 048
     Dates: start: 20101108
  9. LORAZEPAM [Concomitant]
     Indication: PROPHYLAXIS
     Route: 048
     Dates: start: 20100430
  10. DIAZEPAM [Concomitant]
     Indication: PROPHYLAXIS
     Route: 048
     Dates: start: 20090601
  11. PREDNISONE [Suspect]
     Indication: PROSTATE CANCER METASTATIC
     Route: 048
     Dates: start: 20101015
  12. COENZYME Q10 [Concomitant]
     Indication: NUTRITIONAL SUPPORT
     Route: 048
     Dates: start: 19980101
  13. BLACKMORES CHEWABLE BIO CALCIUM [Concomitant]
     Indication: NUTRITIONAL SUPPORT
     Route: 048
     Dates: start: 19980101
  14. AGAROL LAXATIVE [Concomitant]
     Indication: CONSTIPATION
     Route: 065
     Dates: start: 20090327
  15. NAPROXEN [Concomitant]
     Indication: OSTEOARTHRITIS
     Route: 048
     Dates: start: 20080101
  16. MAGNESIUM [Concomitant]
     Indication: NUTRITIONAL SUPPORT
     Route: 048
     Dates: start: 19980101
  17. ACTIQ [Concomitant]
     Indication: CANCER PAIN
     Route: 048
     Dates: start: 20100601
  18. NOVOLOG [Concomitant]
     Indication: TYPE 2 DIABETES MELLITUS
     Route: 058
     Dates: start: 20110329
  19. ABIRATERONE ACETATE [Suspect]
     Indication: PROSTATE CANCER METASTATIC
     Route: 048
     Dates: start: 20101015, end: 20101102
  20. ASPIRIN [Concomitant]
     Indication: HYPERTENSION
     Route: 048
     Dates: start: 19930101
  21. ZOMETA [Concomitant]
     Indication: BONE DISORDER
     Route: 042
     Dates: start: 20070514
  22. MOVIPREP [Concomitant]
     Indication: CONSTIPATION
     Route: 048
     Dates: start: 20090327
  23. AMITRIPTYLINE HCL [Concomitant]
     Indication: ILL-DEFINED DISORDER
     Route: 048
  24. DURAGESIC-100 [Concomitant]
     Indication: CANCER PAIN
     Route: 062
     Dates: start: 20101112
  25. MAXOLON [Concomitant]
     Indication: PROPHYLAXIS OF NAUSEA AND VOMITING
     Route: 048
     Dates: start: 20070801
  26. SPAN K [Concomitant]
     Indication: MINERAL SUPPLEMENTATION
     Route: 048
     Dates: start: 20080401
  27. LEUPROLIDE ACETATE [Concomitant]
     Indication: HORMONE THERAPY
     Route: 058
     Dates: start: 20080821
  28. ATORVASTATIN CALCIUM [Concomitant]
     Indication: BLOOD CHOLESTEROL INCREASED
     Route: 048
     Dates: start: 19950101
  29. FUROSEMIDE [Concomitant]
     Indication: HYPERTENSION
     Route: 048
     Dates: start: 20080401
  30. MULTI-VITAMINS [Concomitant]
     Indication: NUTRITIONAL SUPPORT
     Route: 048
     Dates: start: 19980101
  31. FISH OIL [Concomitant]
     Indication: NUTRITIONAL SUPPORT
     Route: 048
     Dates: start: 19980101
  32. COLOXYL SENNA [Concomitant]
     Route: 048
     Dates: start: 20080101
  33. OXYCODONE HCL [Concomitant]
     Indication: CANCER PAIN
     Route: 048
     Dates: start: 20100601

REACTIONS (1)
  - MYOCARDIAL INFARCTION [None]
